FAERS Safety Report 14043529 (Version 2)
Quarter: 2018Q1

REPORT INFORMATION
  Report Type: Spontaneous
  Country: US (occurrence: US)
  Receive Date: 20171004
  Receipt Date: 20180323
  Transmission Date: 20180508
  Serious: Yes (Hospitalization)
  Sender: FDA-Public Use
  Company Number: US-SA-2017SA189521

PATIENT
  Age: 29 Year
  Sex: Female

DRUGS (1)
  1. DUPIXENT [Suspect]
     Active Substance: DUPILUMAB
     Indication: DERMATITIS ATOPIC
     Dosage: FREQUENCY: LOAD
     Route: 058
     Dates: start: 20170907

REACTIONS (6)
  - Gastric disorder [Unknown]
  - Product use issue [Unknown]
  - Eye infection [Recovering/Resolving]
  - Road traffic accident [Unknown]
  - Gastroenteritis viral [Recovered/Resolved]
  - Vomiting [Unknown]

NARRATIVE: CASE EVENT DATE: 201709
